FAERS Safety Report 5302989-5 (Version None)
Quarter: 2007Q2

REPORT INFORMATION
  Report Type: 
  Country: None (occurrence: None)
  Receive Date: 20070420
  Receipt Date: 20070411
  Transmission Date: 20071010
  Serious: Yes (Hospitalization)
  Sender: FDA-Public Use
  Company Number: US-JNJFOC-20070402899

PATIENT
  Sex: Female
  Weight: 49.44 kg

DRUGS (12)
  1. DURAGESIC-100 [Suspect]
     Indication: PAIN
     Route: 062
  2. LISINOPRIL [Suspect]
     Indication: CARDIAC DISORDER
     Route: 048
  3. LASIX [Concomitant]
     Indication: DIURETIC THERAPY
     Route: 048
  4. PREDNISONE TAB [Concomitant]
     Indication: INFLAMMATION
     Route: 048
  5. ZOFRAN [Concomitant]
     Indication: NAUSEA
     Route: 048
  6. ACIPHEX [Concomitant]
     Route: 048
  7. TRILEPTAL [Concomitant]
     Indication: CONVULSION
     Route: 048
  8. PROZAC [Concomitant]
     Indication: DEPRESSION
     Route: 048
  9. FOLIC ACID [Concomitant]
     Route: 048
  10. POTASSIUM ACETATE [Concomitant]
     Route: 048
  11. KLONOPIN [Concomitant]
     Indication: TREMOR
     Route: 048
  12. OXYCODONE HCL [Concomitant]
     Indication: BREAKTHROUGH PAIN
     Route: 048

REACTIONS (7)
  - DEPRESSION [None]
  - DRUG HYPERSENSITIVITY [None]
  - DRUG WITHDRAWAL SYNDROME [None]
  - FLUID RETENTION [None]
  - HYPOTENSION [None]
  - TREMOR [None]
  - URINARY TRACT INFECTION BACTERIAL [None]
